FAERS Safety Report 4859855-9 (Version None)
Quarter: 2005Q4

REPORT INFORMATION
  Report Type: 
  Country: None (occurrence: None)
  Receive Date: 20051215
  Receipt Date: 20051206
  Transmission Date: 20060501
  Serious: Yes (Death, Hospitalization)
  Sender: FDA-Public Use
  Company Number: 2005-BP-21248RO

PATIENT
  Age: 65 Year
  Sex: Male

DRUGS (1)
  1. METHOTREXATE [Suspect]
     Indication: RHEUMATOID ARTHRITIS
     Dosage: 10 MG, PO
     Route: 048
     Dates: start: 19920101, end: 19920101

REACTIONS (6)
  - DRUG PRESCRIBING ERROR [None]
  - DRUG TOXICITY [None]
  - HERPES SIMPLEX [None]
  - MEDICATION ERROR [None]
  - SEPSIS [None]
  - STOMATITIS [None]
